FAERS Safety Report 6201586-7 (Version None)
Quarter: 2009Q2

REPORT INFORMATION
  Report Type: 
  Country: None (occurrence: None)
  Receive Date: 20090519
  Receipt Date: 20090415
  Transmission Date: 20091009
  Serious: Yes (Other)
  Sender: FDA-Public Use
  Company Number: 2009EU001671

PATIENT
  Age: 68 Year
  Sex: Female

DRUGS (11)
  1. TACROLIMUS [Suspect]
     Indication: RENAL TRANSPLANT
     Dosage: 0.2 MG/KG, D
  2. MIRTAZAPINE [Suspect]
     Indication: DEPRESSION
     Dosage: 30 MG/D
  3. SEVELAMER (SEVELAMER) [Concomitant]
  4. ACETYLSALICYLIC ACID SRT [Concomitant]
  5. OMEPRAZOLE [Concomitant]
  6. PRAVASTATIN [Concomitant]
  7. LEVOTHYROXINE SODIUM [Concomitant]
  8. BROMAZEPAM (BROMAZEPAM) [Concomitant]
  9. BASILIXIMAB (BASILIXIMAB) [Concomitant]
  10. MYCOPHENOLATE MOFETIL [Concomitant]
  11. CORTICOSTEROIDS [Concomitant]

REACTIONS (3)
  - DRUG INTERACTION [None]
  - HAEMODIALYSIS [None]
  - HYPOTENSION [None]
